FAERS Safety Report 7860008-0 (Version None)
Quarter: 2011Q4

REPORT INFORMATION
  Report Type: 
  Country: None (occurrence: None)
  Receive Date: 20111025
  Receipt Date: 20111010
  Transmission Date: 20120403
  Serious: Yes (Hospitalization, Other)
  Sender: FDA-Public Use
  Company Number: 2011MA003124

PATIENT
  Age: 58 Year
  Sex: Female
  Weight: 113.3993 kg

DRUGS (9)
  1. BENTYL [Concomitant]
  2. GLIPIZIDE [Concomitant]
  3. METOCLOPRAMIDE [Suspect]
     Dosage: 10 MG;Q6H;PO
     Route: 048
     Dates: start: 20021001, end: 20091201
  4. UNIRETIC [Concomitant]
  5. PROTONIX [Concomitant]
  6. KLONOPIN [Concomitant]
  7. VICODIN [Concomitant]
  8. REMERON [Concomitant]
  9. TOPROL-XL [Concomitant]

REACTIONS (15)
  - IRRITABLE BOWEL SYNDROME [None]
  - SPEECH DISORDER [None]
  - CONDITION AGGRAVATED [None]
  - TARDIVE DYSKINESIA [None]
  - DYSKINESIA [None]
  - BLEPHAROSPASM [None]
  - DEPRESSION [None]
  - DRUG SCREEN POSITIVE [None]
  - DRUG DIVERSION [None]
  - TREATMENT FAILURE [None]
  - NEPHROLITHIASIS [None]
  - ANXIETY [None]
  - HEAD TITUBATION [None]
  - DYSPHAGIA [None]
  - MUSCLE TWITCHING [None]
